FAERS Safety Report 8190192-3 (Version None)
Quarter: 2012Q1

REPORT INFORMATION
  Report Type: 
  Country: None (occurrence: None)
  Receive Date: 20120305
  Receipt Date: 20120221
  Transmission Date: 20120608
  Serious: Yes (Hospitalization)
  Sender: FDA-Public Use
  Company Number: IMP_05742_2012

PATIENT
  Age: 54 Year
  Sex: Female

DRUGS (3)
  1. LISINOPRIL [Concomitant]
  2. SIMVASTATIN [Concomitant]
  3. METFORMIN HYDROCHLORIDE [Suspect]
     Indication: PRODUCT USED FOR UNKNOWN INDICATION
     Dosage: 1000 MG BID

REACTIONS (14)
  - RESPIRATORY DISTRESS [None]
  - SHOCK [None]
  - RESPIRATORY FAILURE [None]
  - ESCHERICHIA TEST POSITIVE [None]
  - LACTIC ACIDOSIS [None]
  - BLOOD GLUCOSE DECREASED [None]
  - URINARY TRACT INFECTION [None]
  - HYPOTENSION [None]
  - MULTI-ORGAN FAILURE [None]
  - RENAL FAILURE ACUTE [None]
  - ASTHENIA [None]
  - SYNCOPE [None]
  - HYPOTHERMIA [None]
  - TOXICITY TO VARIOUS AGENTS [None]
